FAERS Safety Report 6411383-5 (Version None)
Quarter: 2009Q4

REPORT INFORMATION
  Report Type: 
  Country: None (occurrence: None)
  Receive Date: 20091023
  Receipt Date: 20091013
  Transmission Date: 20100525
  Serious: Yes (Other)
  Sender: FDA-Public Use
  Company Number: US-WYE-H11590209

PATIENT
  Age: 41 Year
  Sex: Female

DRUGS (2)
  1. RELISTOR [Suspect]
     Indication: CONSTIPATION
     Dosage: 1 DOSE EVERY 1 TOT
     Route: 065
     Dates: start: 20090913, end: 20090913
  2. PREVACID [Concomitant]
     Indication: DYSPEPSIA
     Dosage: UNSPECIFIED
     Route: 065

REACTIONS (2)
  - DECREASED APPETITE [None]
  - DRUG INEFFECTIVE [None]
